FAERS Safety Report 23616944 (Version 1)
Quarter: 2024Q1

REPORT INFORMATION
  Report Type: Spontaneous
  Country: PT (occurrence: PT)
  Receive Date: 20240311
  Receipt Date: 20240311
  Transmission Date: 20240410
  Serious: Yes (Other)
  Sender: FDA-Public Use
  Company Number: PT-Zentiva-2024-ZT-003388

PATIENT
  Sex: Female

DRUGS (3)
  1. LETROZOLE [Suspect]
     Active Substance: LETROZOLE
     Indication: Metastases to pelvis
     Dosage: UNK
     Route: 065
     Dates: end: 202011
  2. RIBOCICLIB [Suspect]
     Active Substance: RIBOCICLIB
     Indication: Metastases to pelvis
     Dosage: UNK
     Route: 065
     Dates: end: 202011
  3. ZOLEDRONIC ACID [Suspect]
     Active Substance: ZOLEDRONIC ACID
     Indication: Metastases to pelvis
     Dosage: UNK
     Route: 065
     Dates: end: 202011

REACTIONS (2)
  - Hepatotoxicity [Unknown]
  - Off label use [Unknown]
